FAERS Safety Report 6732715-4 (Version None)
Quarter: 2010Q2

REPORT INFORMATION
  Report Type: 
  Country: None (occurrence: None)
  Receive Date: 20100514
  Receipt Date: 20100504
  Transmission Date: 20101027
  Serious: Yes (Other)
  Sender: FDA-Public Use
  Company Number: TPH-00255

PATIENT
  Age: 44 Year
  Sex: Female

DRUGS (1)
  1. TRIQUILAR [Suspect]
     Indication: HAEMORRHAGIC OVARIAN CYST
     Dosage: 1 DF, ORAL
     Route: 048
     Dates: start: 20080101, end: 20090131

REACTIONS (1)
  - VASCULITIS [None]
